FAERS Safety Report 4376219-5 (Version None)
Quarter: 2004Q2

REPORT INFORMATION
  Report Type: 
  Country: None (occurrence: None)
  Receive Date: 20040607
  Receipt Date: 20040525
  Transmission Date: 20050107
  Serious: Yes (Other)
  Sender: FDA-Public Use
  Company Number: US-SHR-04-022410

PATIENT
  Age: 45 Year
  Sex: Male
  Weight: 108.8 kg

DRUGS (11)
  1. CAMPATH [Suspect]
     Indication: NON-HODGKIN'S LYMPHOMA
     Dosage: 3-5/10-20/30 MG DOSE ESCALATION, INTRAVENOUS
     Route: 042
     Dates: start: 20040211
  2. INSULIN [Concomitant]
  3. GLYBURIDE [Concomitant]
  4. BENADRYL ^ACHE^ (DIPHENHYDRAMINE HYDROCHLORIDE, AMMONIUM CHLORIDE, MEN [Concomitant]
  5. BACTRIM [Concomitant]
  6. FAMVIR [Concomitant]
  7. ANZEMET (DOLASETRON MESILATE) [Concomitant]
  8. TYLENOL [Concomitant]
  9. ADVIL [Concomitant]
  10. CALCIUM (CALCIUM) [Concomitant]
  11. ASPIRIN [Concomitant]

REACTIONS (1)
  - BLOOD GLUCOSE INCREASED [None]
